FAERS Safety Report 4621092-0 (Version None)
Quarter: 2005Q1

REPORT INFORMATION
  Report Type: 
  Country: None (occurrence: None)
  Receive Date: 20050325
  Receipt Date: 20050317
  Transmission Date: 20050727
  Serious: Yes (Hospitalization)
  Sender: FDA-Public Use
  Company Number: 2005046391

PATIENT
  Age: 59 Year
  Sex: Male

DRUGS (1)
  1. AMLODIPINE/ATORVASTATIN (ATORVASTATIN, AMLODIPINE) [Suspect]
     Indication: HYPERTENSION
     Dosage: 5MG/10MG (1 IN 1 D), ORAL
     Route: 048
     Dates: start: 20050201, end: 20050301

REACTIONS (3)
  - BILE DUCT OBSTRUCTION [None]
  - HEPATITIS [None]
  - HEPATOMEGALY [None]
